FAERS Safety Report 22979216 (Version 3)
Quarter: 2023Q4

REPORT INFORMATION
  Report Type: Report from Study
  Country: US (occurrence: US)
  Receive Date: 20230925
  Receipt Date: 20231031
  Transmission Date: 20240110
  Serious: No
  Sender: FDA-Public Use
  Company Number: US-002147023-NVSC2023US201968

PATIENT
  Sex: Female

DRUGS (10)
  1. MOMETASONE [Suspect]
     Active Substance: MOMETASONE
     Indication: Psoriasis
     Dosage: UNK
     Route: 065
  2. MOMETASONE [Suspect]
     Active Substance: MOMETASONE
     Indication: Intertrigo
  3. TRIAMCINOLONE [Suspect]
     Active Substance: TRIAMCINOLONE
     Indication: Psoriasis
     Dosage: UNK
     Route: 065
  4. TRIAMCINOLONE [Suspect]
     Active Substance: TRIAMCINOLONE
     Indication: Intertrigo
  5. COSENTYX [Suspect]
     Active Substance: SECUKINUMAB
     Indication: Psoriasis
     Dosage: UNK
     Route: 065
  6. COSENTYX [Suspect]
     Active Substance: SECUKINUMAB
     Indication: Intertrigo
  7. CICLOPIROX [Suspect]
     Active Substance: CICLOPIROX
     Indication: Psoriasis
     Dosage: UNK
     Route: 065
  8. CICLOPIROX [Suspect]
     Active Substance: CICLOPIROX
     Indication: Intertrigo
  9. NYSTATIN [Suspect]
     Active Substance: NYSTATIN
     Indication: Psoriasis
     Dosage: UNK
     Route: 065
  10. NYSTATIN [Suspect]
     Active Substance: NYSTATIN
     Indication: Intertrigo

REACTIONS (12)
  - Psoriasis [Recovered/Resolved]
  - Pruritus [Recovered/Resolved]
  - Skin exfoliation [Recovered/Resolved]
  - Rash [Recovered/Resolved]
  - Papule [Recovered/Resolved]
  - Skin plaque [Recovered/Resolved]
  - Erythema [Recovered/Resolved]
  - Oropharyngeal pain [Recovered/Resolved]
  - Rhinorrhoea [Recovered/Resolved]
  - Nasal congestion [Recovered/Resolved]
  - Arthralgia [Recovered/Resolved]
  - Therapeutic product effect incomplete [Unknown]
